FAERS Safety Report 6452803-X (Version None)
Quarter: 2009Q4

REPORT INFORMATION
  Report Type: 
  Country: None (occurrence: None)
  Receive Date: 20091124
  Receipt Date: 20091118
  Transmission Date: 20100525
  Serious: No
  Sender: FDA-Public Use
  Company Number: US-B.I. PHARMACEUTICALS,INC./RIDGEFIELD-2009-BP-13450BP

PATIENT
  Age: 44 Year
  Sex: Female

DRUGS (3)
  1. SPIRIVA [Suspect]
     Indication: EMPHYSEMA
     Dosage: 18 MCG
     Route: 055
     Dates: start: 20091109
  2. GENERIC IPRATRPIUM BROMIDE [Suspect]
     Indication: EMPHYSEMA
     Route: 055
     Dates: start: 20091109
  3. ALBUTEROL [Suspect]
     Indication: EMPHYSEMA
     Route: 055
     Dates: start: 20091109

REACTIONS (1)
  - DYSPNOEA [None]
